FAERS Safety Report 9320816 (Version 1)
Quarter: 2013Q2

REPORT INFORMATION
  Report Type: Spontaneous
  Country: FR (occurrence: None)
  Receive Date: 20130528
  Receipt Date: 20130528
  Transmission Date: 20140414
  Serious: Yes (Hospitalization)
  Sender: FDA-Public Use
  Company Number: DSM-2013-00490

PATIENT
  Age: 67 Year
  Sex: Female

DRUGS (2)
  1. AXELER [Suspect]
     Indication: HYPERTENSION
     Dosage: 40/10 MG (1 IN 1 D), ORAL
     Route: 048
  2. AFINITOR [Suspect]
     Indication: ENDOCRINE NEOPLASM
     Dosage: 10 MG (10 MG, 1 IN 1 D) ORAL
     Route: 048
     Dates: start: 201201, end: 2013

REACTIONS (1)
  - Lung disorder [None]
